FAERS Safety Report 21399564 (Version 1)
Quarter: 2022Q4

REPORT INFORMATION
  Report Type: Spontaneous
  Country: US (occurrence: US)
  Receive Date: 20221001
  Receipt Date: 20221001
  Transmission Date: 20230113
  Serious: Yes (Death, Other)
  Sender: FDA-Public Use
  Company Number: US-Shilpa Medicare Limited-SML-US-2022-01205

PATIENT
  Age: 20 Month
  Sex: Female

DRUGS (5)
  1. BUSULFAN [Suspect]
     Active Substance: BUSULFAN
     Indication: Acute lymphocytic leukaemia
  2. FLUDARABINE [Suspect]
     Active Substance: FLUDARABINE PHOSPHATE
     Indication: Acute lymphocytic leukaemia
  3. MELPHALAN [Suspect]
     Active Substance: MELPHALAN
     Indication: Acute lymphocytic leukaemia
  4. TACROLIMUS [Suspect]
     Active Substance: TACROLIMUS
     Indication: Acute lymphocytic leukaemia
  5. MYCOPHENOLATE MOFETIL [Suspect]
     Active Substance: MYCOPHENOLATE MOFETIL
     Indication: Acute lymphocytic leukaemia

REACTIONS (11)
  - Cardiac arrest [Fatal]
  - Hyperleukocytosis [Unknown]
  - Leukocytosis [Unknown]
  - Acute kidney injury [Unknown]
  - Hepatic failure [Unknown]
  - Abdominal compartment syndrome [Unknown]
  - Intestinal infarction [Unknown]
  - Haemorrhage [Unknown]
  - Coagulopathy [Unknown]
  - Metabolic syndrome [Unknown]
  - Cardiogenic shock [Unknown]
